FAERS Safety Report 9423692 (Version 1)
Quarter: 2020Q3

REPORT INFORMATION
  Report Type: Spontaneous
  Country: KR (occurrence: KR)
  Receive Date: 20130727
  Receipt Date: 20130727
  Transmission Date: 20201105
  Serious: Yes (Life-Threatening)
  Sender: FDA-Public Use
  Company Number: PHHY2013KR078546

PATIENT

DRUGS (10)
  1. THIOPENTAL [Suspect]
     Active Substance: THIOPENTAL
     Indication: ANAESTHESIA
     Route: 064
  2. SEVOFLURANE. [Suspect]
     Active Substance: SEVOFLURANE
     Route: 064
  3. SUCCINYLCHOLINE CHLORIDE. [Suspect]
     Active Substance: SUCCINYLCHOLINE CHLORIDE
     Route: 064
  4. ATROPINE. [Suspect]
     Active Substance: ATROPINE
     Route: 064
  5. ROPIVACAINE. [Suspect]
     Active Substance: ROPIVACAINE HYDROCHLORIDE
     Route: 064
  6. VECURONIUM [Suspect]
     Active Substance: VECURONIUM BROMIDE
     Route: 064
  7. LIDOCAINE. [Suspect]
     Active Substance: LIDOCAINE
     Route: 064
  8. FENTANYL. [Suspect]
     Active Substance: FENTANYL
     Route: 064
  9. EPHEDRINE. [Suspect]
     Active Substance: EPHEDRINE
  10. EPINEPHRINE. [Suspect]
     Active Substance: EPINEPHRINE
     Route: 064

REACTIONS (2)
  - Foetal exposure during pregnancy [Unknown]
  - Bradycardia foetal [Unknown]
